FAERS Safety Report 5678995-8 (Version None)
Quarter: 2008Q1

REPORT INFORMATION
  Report Type: 
  Country: None (occurrence: None)
  Receive Date: 20080325
  Receipt Date: 20080318
  Transmission Date: 20080703
  Serious: Yes (Death)
  Sender: FDA-Public Use
  Company Number: A0716192A

PATIENT
  Age: 61 Year
  Sex: Male

DRUGS (9)
  1. ZOFRAN [Suspect]
     Indication: PROPHYLAXIS OF NAUSEA AND VOMITING
     Dosage: 4MG SINGLE DOSE
     Route: 042
     Dates: start: 20080309, end: 20080309
  2. VALIUM [Concomitant]
  3. LORTAB [Concomitant]
  4. MIRALAX [Concomitant]
  5. ASCORBIC ACID [Concomitant]
  6. LEXAPRO [Concomitant]
  7. LIPITOR [Concomitant]
  8. PROCRIT [Concomitant]
  9. PREVACID [Concomitant]

REACTIONS (4)
  - DEATH [None]
  - DEPRESSED LEVEL OF CONSCIOUSNESS [None]
  - INCORRECT ROUTE OF DRUG ADMINISTRATION [None]
  - SLEEP DISORDER [None]
